FAERS Safety Report 8347292-4 (Version None)
Quarter: 2012Q2

REPORT INFORMATION
  Report Type: 
  Country: None (occurrence: None)
  Receive Date: 20120507
  Receipt Date: 20120423
  Transmission Date: 20120825
  Serious: Yes (Hospitalization, Disabling, Other)
  Sender: FDA-Public Use
  Company Number: 2010MA000220

PATIENT
  Sex: Female
  Weight: 52.1637 kg

DRUGS (20)
  1. ROXICET [Concomitant]
  2. CORGARD [Concomitant]
  3. HYDROCORTISONE CREAM [Concomitant]
  4. BUSPAR [Concomitant]
  5. HYDROCODONE BITARTRATE AND ACETAMINOPHEN [Concomitant]
  6. LANOXIN [Concomitant]
  7. TAGAMET [Concomitant]
  8. ZOLOFT [Concomitant]
  9. METOCLOPRAMIDE [Suspect]
     Indication: NAUSEA
     Dosage: 10 MG;QID;PO
     Route: 048
     Dates: start: 19940730, end: 19990303
  10. METOCLOPRAMIDE [Suspect]
     Indication: GASTROOESOPHAGEAL REFLUX DISEASE
     Dosage: 10 MG;QID;PO
     Route: 048
     Dates: start: 19940730, end: 19990303
  11. TIMOPTIC [Concomitant]
  12. CEPHALEXIN [Concomitant]
  13. GEMFIBROZIL [Concomitant]
  14. TRIMOX [Concomitant]
  15. GUIATUSS AC [Concomitant]
  16. PRILOSEC [Concomitant]
  17. RELAFEN [Concomitant]
  18. HYTRIN [Concomitant]
  19. NIZORAL [Concomitant]
  20. METOPROLOL TARTRATE [Concomitant]

REACTIONS (30)
  - DYSPHAGIA [None]
  - MUSCULOSKELETAL PAIN [None]
  - OSTEOARTHRITIS [None]
  - HYSTEROSCOPY [None]
  - TARDIVE DYSKINESIA [None]
  - MYOCARDIAL INFARCTION [None]
  - INTERVERTEBRAL DISC PROTRUSION [None]
  - FLUID INTAKE REDUCED [None]
  - SPINAL COLUMN STENOSIS [None]
  - GALLBLADDER OPERATION [None]
  - BACK DISORDER [None]
  - SPONDYLOLISTHESIS [None]
  - PAIN [None]
  - NERVOUS SYSTEM DISORDER [None]
  - PAIN IN EXTREMITY [None]
  - MENTAL DISORDER [None]
  - EXTRAPYRAMIDAL DISORDER [None]
  - ACTIVITIES OF DAILY LIVING IMPAIRED [None]
  - CHOKING [None]
  - BACK PAIN [None]
  - DEFORMITY [None]
  - RESTLESS LEGS SYNDROME [None]
  - SPEECH DISORDER [None]
  - ECONOMIC PROBLEM [None]
  - QUALITY OF LIFE DECREASED [None]
  - DEPRESSION [None]
  - INTERVERTEBRAL DISC DEGENERATION [None]
  - OVERWEIGHT [None]
  - GAIT DISTURBANCE [None]
  - MASTICATION DISORDER [None]
